FAERS Safety Report 5209865-7 (Version None)
Quarter: 2006Q4

REPORT INFORMATION
  Report Type: 
  Country: None (occurrence: None)
  Receive Date: 20061130
  Receipt Date: 20051021
  Transmission Date: 20070319
  Serious: Yes (Other)
  Sender: FDA-Public Use
  Company Number: 2005076815

PATIENT

DRUGS (1)
  1. LINEZOLID [Suspect]
     Indication: ILL-DEFINED DISORDER

REACTIONS (1)
  - LACTIC ACIDOSIS [None]
